FAERS Safety Report 16299558 (Version 3)
Quarter: 2020Q1

REPORT INFORMATION
  Report Type: Spontaneous
  Country: US (occurrence: US)
  Receive Date: 20190510
  Receipt Date: 20200131
  Transmission Date: 20200409
  Serious: No
  Sender: FDA-Public Use
  Company Number: US-AMGEN-USASP2019073181

PATIENT
  Age: 34 Year
  Sex: Male
  Weight: 151.47 kg

DRUGS (3)
  1. NEULASTA [Suspect]
     Active Substance: PEGFILGRASTIM
     Indication: PRODUCT USED FOR UNKNOWN INDICATION
     Dosage: 6 MILLIGRAM
     Route: 058
  2. TAXOL [Concomitant]
     Active Substance: PACLITAXEL
     Indication: ENDOMETRIAL CANCER STAGE III
     Dosage: UNK UNK, CYCLICAL
  3. CARBOPLATIN. [Concomitant]
     Active Substance: CARBOPLATIN
     Indication: ENDOMETRIAL CANCER STAGE III
     Dosage: UNK UNK, CYCLICAL

REACTIONS (1)
  - Incorrect disposal of product [Unknown]

NARRATIVE: CASE EVENT DATE: 201904
